FAERS Safety Report 4618338-1 (Version None)
Quarter: 2005Q1

REPORT INFORMATION
  Report Type: 
  Country: None (occurrence: None)
  Receive Date: 20050323
  Receipt Date: 20050311
  Transmission Date: 20050727
  Serious: No
  Sender: FDA-Public Use
  Company Number: 2005SE01516

PATIENT
  Age: 69 Year
  Sex: Female

DRUGS (3)
  1. BLOPRESS [Suspect]
     Indication: HYPERTENSION
     Dosage: 4 MG QD PO
     Route: 048
     Dates: start: 20011212
  2. SULFONAMIDES, UREA DERIVATIVES [Concomitant]
  3. ALPHA GLUCOSIDADES INHIBITORS [Concomitant]

REACTIONS (2)
  - IDIOPATHIC THROMBOCYTOPENIC PURPURA [None]
  - NORMOCHROMIC NORMOCYTIC ANAEMIA [None]
